FAERS Safety Report 8307684-6 (Version None)
Quarter: 2012Q2

REPORT INFORMATION
  Report Type: 
  Country: None (occurrence: None)
  Receive Date: 20120424
  Receipt Date: 20120424
  Transmission Date: 20120825
  Serious: No
  Sender: FDA-Public Use
  Company Number: None

PATIENT
  Sex: Male
  Weight: 55.791 kg

DRUGS (2)
  1. SODIUM CHLORIDE [Concomitant]
  2. VANCOMYCIN [Suspect]
     Indication: CELLULITIS STAPHYLOCOCCAL
     Dosage: 2000MG
     Route: 041
     Dates: start: 20120420, end: 20120420

REACTIONS (2)
  - FACE OEDEMA [None]
  - ERYTHEMA [None]
